FAERS Safety Report 4952277-1 (Version None)
Quarter: 2006Q1

REPORT INFORMATION
  Report Type: 
  Country: None (occurrence: None)
  Receive Date: 20060131
  Receipt Date: 20051004
  Transmission Date: 20060701
  Serious: Yes (Hospitalization)
  Sender: FDA-Public Use
  Company Number: WAES 0510USA03053

PATIENT
  Age: 55 Year
  Sex: Female
  Weight: 76.6579 kg

DRUGS (8)
  1. EMEND [Suspect]
     Indication: PROPHYLAXIS OF NAUSEA AND VOMITING
     Dosage: SEE IMAGE
     Route: 048
     Dates: start: 20050929, end: 20050929
  2. EMEND [Suspect]
     Indication: PROPHYLAXIS OF NAUSEA AND VOMITING
     Dosage: SEE IMAGE
     Route: 048
     Dates: start: 20050930, end: 20050930
  3. ADRIAMYCIN PFS [Concomitant]
  4. ALAXI [Concomitant]
  5. CYTOXAN [Concomitant]
  6. DECADRON [Concomitant]
  7. FOSAMAX [Concomitant]
  8. NEULASTA [Concomitant]

REACTIONS (1)
  - HEADACHE [None]
